FAERS Safety Report 9929908 (Version 1)
Quarter: 2014Q1

REPORT INFORMATION
  Report Type: Spontaneous
  Country: US (occurrence: US)
  Receive Date: 20140227
  Receipt Date: 20140227
  Transmission Date: 20141002
  Serious: Yes (Other)
  Sender: FDA-Public Use
  Company Number: US-ELI_LILLY_AND_COMPANY-US201402005717

PATIENT
  Age: 82 Year
  Sex: Male

DRUGS (4)
  1. HUMALOG LISPRO [Suspect]
     Indication: TYPE 1 DIABETES MELLITUS
  2. HUMALOG LISPRO [Suspect]
     Dosage: UNK, PRN
     Route: 065
     Dates: start: 1999
  3. LANTUS [Concomitant]
     Dosage: 14 U, EACH MORNING
  4. LANTUS [Concomitant]
     Dosage: 9 U, EACH EVENING

REACTIONS (6)
  - Macular degeneration [Unknown]
  - Blindness [Recovering/Resolving]
  - Blood glucose increased [Unknown]
  - Stress [Unknown]
  - Nasopharyngitis [Unknown]
  - Drug effect decreased [Unknown]
